FAERS Safety Report 18617029 (Version 1)
Quarter: 2020Q4

REPORT INFORMATION
  Report Type: Spontaneous
  Country: CN (occurrence: CN)
  Receive Date: 20201215
  Receipt Date: 20201215
  Transmission Date: 20210114
  Serious: Yes (Other)
  Sender: FDA-Public Use
  Company Number: CN-TOPROL-202000111

PATIENT
  Age: 70 Year
  Sex: Female
  Weight: 70 kg

DRUGS (1)
  1. BETALOC ZOK [Suspect]
     Active Substance: METOPROLOL SUCCINATE
     Indication: ARTERIOSCLEROSIS CORONARY ARTERY
     Route: 048
     Dates: start: 20201116, end: 20201119

REACTIONS (6)
  - Chest discomfort [Unknown]
  - Asthma [Unknown]
  - Cyanosis [Unknown]
  - Dyspnoea [Unknown]
  - Agitation [Unknown]
  - Asphyxia [Recovering/Resolving]

NARRATIVE: CASE EVENT DATE: 20201119
